FAERS Safety Report 20382393 (Version 4)
Quarter: 2022Q3

REPORT INFORMATION
  Report Type: Report from Study
  Country: US (occurrence: US)
  Receive Date: 20220127
  Receipt Date: 20220916
  Transmission Date: 20221026
  Serious: Yes (Death, Other)
  Sender: FDA-Public Use
  Company Number: US-GW PHARMA-202201USGW00323

PATIENT
  Age: 7 Year
  Sex: Male
  Weight: 19.048 kg

DRUGS (2)
  1. EPIDIOLEX [Suspect]
     Active Substance: CANNABIDIOL
     Indication: Lennox-Gastaut syndrome
     Dosage: 12.60 MG/KG/DAY, 120 MILLIGRAM, BID (DOSE INCREASED TO 180 MILLIGRAM, BID, WHICH WAS NOT SHIPPED YET
     Route: 048
  2. EPIDIOLEX [Suspect]
     Active Substance: CANNABIDIOL
     Dosage: 3.6 MILLILITER
     Route: 048
     Dates: start: 202102

REACTIONS (3)
  - Death [Fatal]
  - Seizure [Unknown]
  - Somnolence [Unknown]

NARRATIVE: CASE EVENT DATE: 20220607
